FAERS Safety Report 8454214-4 (Version None)
Quarter: 2012Q2

REPORT INFORMATION
  Report Type: 
  Country: None (occurrence: None)
  Receive Date: 20120620
  Receipt Date: 20120618
  Transmission Date: 20120825
  Serious: Yes (Death, Other)
  Sender: FDA-Public Use
  Company Number: GB-ROCHE-GNE323924

PATIENT
  Sex: Female
  Weight: 52.074 kg

DRUGS (6)
  1. LUCENTIS [Suspect]
     Indication: PRODUCT USED FOR UNKNOWN INDICATION
     Dosage: UNK UNK, UNKNOWN
     Route: 050
  2. LATANOPROST [Concomitant]
     Dates: start: 20100914
  3. SENNA-MINT WAF [Concomitant]
     Dates: start: 20100202
  4. ACETAMINOPHEN [Concomitant]
     Dates: start: 20090218
  5. ISPAGHULA HUSK [Concomitant]
     Dates: start: 20100914
  6. LOPRAZOLAM [Concomitant]
     Dates: start: 20100914

REACTIONS (8)
  - SUBDURAL HAEMATOMA [None]
  - PULMONARY EMBOLISM [None]
  - BRAIN COMPRESSION [None]
  - SOFT TISSUE INJURY [None]
  - HEAD INJURY [None]
  - LACERATION [None]
  - IMMOBILE [None]
  - BRONCHOPNEUMONIA [None]
